FAERS Safety Report 6457725-6 (Version None)
Quarter: 2009Q4

REPORT INFORMATION
  Report Type: 
  Country: None (occurrence: None)
  Receive Date: 20091125
  Receipt Date: 20091116
  Transmission Date: 20100525
  Serious: Yes (Life-Threatening, Hospitalization)
  Sender: FDA-Public Use
  Company Number: JP-PFIZER INC-2009301923

PATIENT
  Age: 17 Year
  Sex: Female

DRUGS (6)
  1. SOLANAX [Suspect]
     Dosage: UNK
     Route: 048
     Dates: start: 20090906, end: 20090101
  2. AKINETON [Suspect]
     Route: 048
  3. IBUPROFEN [Suspect]
     Dosage: UNK
     Route: 048
     Dates: start: 20090906, end: 20090101
  4. RISPERDAL [Suspect]
     Dosage: UNK
     Route: 048
     Dates: start: 20090906, end: 20090906
  5. PYRAZOLONES [Suspect]
     Dosage: UNK
     Route: 048
     Dates: start: 20090906
  6. SEROQUEL [Suspect]
     Dosage: UNK
     Route: 048
     Dates: start: 20090906

REACTIONS (8)
  - ALTERED STATE OF CONSCIOUSNESS [None]
  - BLOOD CREATINE PHOSPHOKINASE INCREASED [None]
  - DECUBITUS ULCER [None]
  - MULTIPLE DRUG OVERDOSE [None]
  - PNEUMONIA [None]
  - PYREXIA [None]
  - RHABDOMYOLYSIS [None]
  - URTICARIA [None]
